FAERS Safety Report 16200705 (Version 1)
Quarter: 2019Q2

REPORT INFORMATION
  Report Type: Spontaneous
  Country: US (occurrence: US)
  Receive Date: 20190416
  Receipt Date: 20190416
  Transmission Date: 20190711
  Serious: No
  Sender: FDA-Public Use
  Company Number: US-DRREDDYS-USA/USA/19/0109368

PATIENT
  Sex: Female
  Weight: 81.8 kg

DRUGS (2)
  1. TOPAMAX [Concomitant]
     Active Substance: TOPIRAMATE
     Indication: BIPOLAR DISORDER
     Route: 065
  2. OLANZAPINE FILM-COATED TABLET 20 MG [Suspect]
     Active Substance: OLANZAPINE
     Indication: BIPOLAR DISORDER
     Route: 048
     Dates: start: 20190201

REACTIONS (1)
  - Drug screen false positive [Unknown]
